FAERS Safety Report 13904701 (Version 1)
Quarter: 2017Q3

REPORT INFORMATION
  Report Type: Spontaneous
  Country: US (occurrence: US)
  Receive Date: 20170824
  Receipt Date: 20170824
  Transmission Date: 20171127
  Serious: Yes (Hospitalization)
  Sender: FDA-Public Use
  Company Number: None

PATIENT
  Age: 60 Year
  Sex: Female
  Weight: 92 kg

DRUGS (1)
  1. DOCUSATE SODIUM. [Suspect]
     Active Substance: DOCUSATE SODIUM
     Indication: CONSTIPATION
     Dates: start: 20161211, end: 20170131

REACTIONS (6)
  - Abdominal pain [None]
  - Vomiting [None]
  - Burkholderia test positive [None]
  - Nausea [None]
  - Diarrhoea [None]
  - Abscess [None]

NARRATIVE: CASE EVENT DATE: 20170221
